FAERS Safety Report 11758237 (Version 1)
Quarter: 2015Q4

REPORT INFORMATION
  Report Type: Report from Study
  Country: US (occurrence: US)
  Receive Date: 20151120
  Receipt Date: 20151120
  Transmission Date: 20160304
  Serious: Yes (Other)
  Sender: FDA-Public Use
  Company Number: US-AMGEN-USASP2015037488

PATIENT
  Age: 87 Year
  Sex: Female
  Weight: 66.4 kg

DRUGS (22)
  1. CARDIZEM CD [Concomitant]
     Active Substance: DILTIAZEM HYDROCHLORIDE
     Indication: CARDIAC DISORDER
     Dosage: 360 MG, QD
     Route: 048
  2. COLACE [Concomitant]
     Active Substance: DOCUSATE SODIUM
     Dosage: UNK
  3. GARLIC                             /01570501/ [Concomitant]
     Dosage: UNK
  4. CARDIZEM CD [Concomitant]
     Active Substance: DILTIAZEM HYDROCHLORIDE
     Indication: BLOOD PRESSURE ABNORMAL
  5. ECHINACEA                          /01323501/ [Concomitant]
     Dosage: UNK
  6. FOLIC ACID. [Concomitant]
     Active Substance: FOLIC ACID
     Dosage: UNK
  7. VITAMIN B6 [Concomitant]
     Active Substance: PYRIDOXINE HYDROCHLORIDE
     Dosage: 100 MG, QD
     Route: 048
  8. PROLIA [Suspect]
     Active Substance: DENOSUMAB
     Dosage: UNK
     Route: 058
     Dates: start: 20141202
  9. LIPITOR [Concomitant]
     Active Substance: ATORVASTATIN CALCIUM
     Dosage: 80 MG, QHS
     Route: 048
  10. LISINOPRIL. [Concomitant]
     Active Substance: LISINOPRIL
     Indication: BLOOD PRESSURE ABNORMAL
  11. PRESERVISION [Concomitant]
     Active Substance: MINERALS\VITAMINS
     Dosage: 1 TABLET, QD
  12. VITAMIN C [Concomitant]
     Active Substance: ASCORBIC ACID
     Dosage: 500 MG, 1 CAPSULE BID
  13. PROLIA [Suspect]
     Active Substance: DENOSUMAB
     Indication: OSTEOPOROSIS POSTMENOPAUSAL
     Dosage: 60 MG, Q6MO
     Route: 058
     Dates: start: 20131125
  14. AMLODIPINE [Concomitant]
     Active Substance: AMLODIPINE BESYLATE
     Indication: CARDIAC DISORDER
     Dosage: 2.5 MG, QD
     Route: 048
  15. CITRACAL + D                       /01606701/ [Concomitant]
     Indication: CARDIAC DISORDER
     Dosage: 1 TABLET, QD
  16. LISINOPRIL. [Concomitant]
     Active Substance: LISINOPRIL
     Indication: CARDIAC DISORDER
     Dosage: 40 MG, QD
     Route: 048
  17. MULTIVITAMIN                       /00097801/ [Concomitant]
     Active Substance: VITAMINS
     Dosage: 1 TABLET, QD
     Route: 048
  18. ASA [Concomitant]
     Active Substance: ASPIRIN
     Indication: CARDIAC DISORDER
     Dosage: 81 MG, QD
     Route: 048
  19. VITAMIN D3 [Concomitant]
     Active Substance: CHOLECALCIFEROL
     Dosage: 2000 IU, QD
     Route: 048
  20. PROBIOTIC                          /06395501/ [Concomitant]
     Active Substance: BIFIDOBACTERIUM ANIMALIS SUBSP. LACTIS
     Dosage: UNK
  21. AMLODIPINE [Concomitant]
     Active Substance: AMLODIPINE BESYLATE
     Indication: BLOOD PRESSURE ABNORMAL
  22. VITAMIN B12 [Concomitant]
     Active Substance: CYANOCOBALAMIN
     Dosage: 500 MUG, QD
     Route: 048

REACTIONS (26)
  - Furuncle [Recovered/Resolved]
  - Abscess [Unknown]
  - Eructation [Unknown]
  - Dyslipidaemia [Unknown]
  - Skin lesion [Unknown]
  - Diverticulitis [Unknown]
  - Balance disorder [Unknown]
  - Hyperaesthesia [Unknown]
  - Carpal tunnel syndrome [Unknown]
  - Rash pruritic [Unknown]
  - Pruritus [Recovered/Resolved]
  - Carbuncle [Recovered/Resolved]
  - Rash papular [Unknown]
  - Skin candida [Unknown]
  - Rash [Not Recovered/Not Resolved]
  - Subcutaneous abscess [Unknown]
  - Hiccups [Unknown]
  - Cardiac murmur [Unknown]
  - Pain [Recovered/Resolved]
  - Folliculitis [Unknown]
  - Skin ulcer [Unknown]
  - Hypersensitivity [Recovered/Resolved]
  - Abdominal pain [Recovering/Resolving]
  - Hypoaesthesia [Unknown]
  - Arthritis [Unknown]
  - Tinel^s sign [Unknown]

NARRATIVE: CASE EVENT DATE: 20140202
